FAERS Safety Report 8237763 (Version 4)
Quarter: 2013Q1

REPORT INFORMATION
  Report Type: Spontaneous
  Country: US (occurrence: US)
  Receive Date: 20111109
  Receipt Date: 20130222
  Transmission Date: 20140127
  Serious: Yes (Hospitalization)
  Sender: FDA-Public Use
  Company Number: US-BAYER-2011-106426

PATIENT
  Age: 27 Year
  Sex: Female
  Weight: 106.58 kg

DRUGS (8)
  1. YAZ [Suspect]
     Indication: CONTRACEPTION
     Dosage: UNK
     Dates: start: 20090710, end: 20100608
  2. YAZ [Suspect]
     Indication: MENORRHAGIA
  3. YAZ [Suspect]
     Indication: ANAEMIA
  4. GIANVI [Suspect]
     Dosage: UNK
     Dates: start: 20100608, end: 20101122
  5. TOPAMAX [Concomitant]
     Indication: MIGRAINE
  6. IMITREX [Concomitant]
     Indication: MIGRAINE
  7. VITAMIN D [Concomitant]
  8. IRON [Concomitant]
     Indication: ANAEMIA

REACTIONS (8)
  - Pulmonary embolism [None]
  - Pain [None]
  - Injury [None]
  - Deep vein thrombosis [None]
  - Emotional distress [None]
  - General physical health deterioration [None]
  - Anxiety [None]
  - Migraine [None]
